APPROVED DRUG PRODUCT: BUSULFAN
Active Ingredient: BUSULFAN
Strength: 6MG/ML
Dosage Form/Route: INJECTABLE;INJECTION
Application: A207794 | Product #001
Applicant: NEXUS PHARMACEUTICALS LLC
Approved: Jan 14, 2019 | RLD: No | RS: No | Type: DISCN